FAERS Safety Report 5941592-0 (Version None)
Quarter: 2008Q4

REPORT INFORMATION
  Report Type: 
  Country: None (occurrence: None)
  Receive Date: 20081104
  Receipt Date: 20081104
  Transmission Date: 20090506
  Serious: No
  Sender: FDA-Public Use
  Company Number: None

PATIENT
  Age: 80 Year
  Sex: Male
  Weight: 68.18 kg

DRUGS (1)
  1. SITAGLIPTIN [Suspect]
     Indication: DIABETES MELLITUS
     Dosage: 50 MG EVERY DAY PO
     Route: 048
     Dates: start: 20080407, end: 20080616

REACTIONS (3)
  - ERYTHEMA MULTIFORME [None]
  - RASH [None]
  - SKIN EXFOLIATION [None]
